FAERS Safety Report 13347110 (Version 1)
Quarter: 2017Q1

REPORT INFORMATION
  Report Type: Report from Study
  Country: US (occurrence: US)
  Receive Date: 20170317
  Receipt Date: 20170317
  Transmission Date: 20170428
  Serious: Yes (Hospitalization)
  Sender: FDA-Public Use
  Company Number: PHHO2017US001991

PATIENT
  Age: 81 Year
  Sex: Female
  Weight: 56 kg

DRUGS (2)
  1. PAZOPANIB [Suspect]
     Active Substance: PAZOPANIB
     Indication: CARCINOID TUMOUR
     Dosage: UNK
     Route: 048
     Dates: start: 20150709
  2. PAZOPANIB [Suspect]
     Active Substance: PAZOPANIB
     Dosage: 12000 MG (TOTAL DOSE)
     Route: 048
     Dates: start: 20151001, end: 20151019

REACTIONS (1)
  - Syncope [Recovering/Resolving]

NARRATIVE: CASE EVENT DATE: 20151013
